FAERS Safety Report 20712727 (Version 2)
Quarter: 2022Q2

REPORT INFORMATION
  Report Type: Spontaneous
  Country: US (occurrence: US)
  Receive Date: 20220415
  Receipt Date: 20220419
  Transmission Date: 20220721
  Serious: No
  Sender: FDA-Public Use
  Company Number: US-UNITED THERAPEUTICS-UNT-2022-007840

PATIENT
  Age: 51 Year
  Sex: Female
  Weight: 67.12 kg

DRUGS (3)
  1. REMODULIN [Suspect]
     Active Substance: TREPROSTINIL
     Indication: Pulmonary arterial hypertension
     Dosage: UNK, CONTINUING
     Route: 058
     Dates: start: 20220210
  2. REMODULIN [Suspect]
     Active Substance: TREPROSTINIL
     Dosage: 0.020 ?G/KG, CONTINUING
     Route: 058
  3. REMODULIN [Suspect]
     Active Substance: TREPROSTINIL
     Dosage: 0.019 ?G/KG, CONTINUING
     Route: 058

REACTIONS (7)
  - Infusion site pain [Unknown]
  - Infusion site discolouration [Not Recovered/Not Resolved]
  - Device adhesion issue [Unknown]
  - Device use error [Unknown]
  - Infusion site swelling [Unknown]
  - Infusion site bruising [Unknown]
  - Device infusion issue [Unknown]

NARRATIVE: CASE EVENT DATE: 20220401
